FAERS Safety Report 20881830 (Version 1)
Quarter: 2022Q2

REPORT INFORMATION
  Report Type: Report from Study
  Country: AU (occurrence: AU)
  Receive Date: 20220527
  Receipt Date: 20220527
  Transmission Date: 20220720
  Serious: Yes (Hospitalization)
  Sender: FDA-Public Use
  Company Number: AU-ABBVIE-22K-008-4408731-00

PATIENT
  Sex: Male

DRUGS (5)
  1. CARBIDOPA\LEVODOPA [Suspect]
     Active Substance: CARBIDOPA\LEVODOPA
     Indication: Parkinson^s disease
     Dosage: DOSE INCREASED,
     Route: 050
     Dates: start: 20200520
  2. CARBIDOPA\LEVODOPA [Suspect]
     Active Substance: CARBIDOPA\LEVODOPA
     Dosage: DOSE INCREASED 1ML PER DAY,
     Route: 050
     Dates: start: 20220520, end: 202205
  3. CARBIDOPA\LEVODOPA [Suspect]
     Active Substance: CARBIDOPA\LEVODOPA
     Dosage: DUODOPA INCREASED TO 5ML
     Route: 050
     Dates: start: 202205
  4. APOMORPHINE HYDROCHLORIDE [Concomitant]
     Active Substance: APOMORPHINE HYDROCHLORIDE
     Indication: Product used for unknown indication
  5. APOMORPHINE HYDROCHLORIDE [Concomitant]
     Active Substance: APOMORPHINE HYDROCHLORIDE
     Dosage: MOVAPO TO BE REDUCED 0.4ML PER DAY AND NIGHT REDUCED 0.5ML PER DAY

REACTIONS (2)
  - Sexually inappropriate behaviour [Unknown]
  - Aggression [Unknown]

NARRATIVE: CASE EVENT DATE: 20220101
